FAERS Safety Report 10425424 (Version 4)
Quarter: 2016Q3

REPORT INFORMATION
  Report Type: Spontaneous
  Country: US (occurrence: US)
  Receive Date: 20140902
  Receipt Date: 20160920
  Transmission Date: 20161109
  Serious: Yes (Other)
  Sender: FDA-Public Use
  Company Number: US-PFIZER INC-2014239554

PATIENT
  Age: 11 Year
  Sex: Male
  Weight: 39 kg

DRUGS (2)
  1. BENEFIX [Suspect]
     Active Substance: COAGULATION FACTOR IX RECOMBINANT HUMAN\ISOPROPYL ALCOHOL
     Dosage: UNK (4100 UNITS NORMAL (+/-5%)=100% DOSE FOR BLEEDS ON DEMAND.)
  2. BENEFIX [Suspect]
     Active Substance: COAGULATION FACTOR IX RECOMBINANT HUMAN\ISOPROPYL ALCOHOL
     Indication: FACTOR IX DEFICIENCY
     Dosage: UNK (3900 UNITS (+/-5%) = 100 U/KG = 100% DOSING X 2 DAYS FOR CURRENT BLEED)

REACTIONS (1)
  - Haemorrhage [Unknown]
